FAERS Safety Report 7199374-0 (Version None)
Quarter: 2010Q4

REPORT INFORMATION
  Report Type: 
  Country: None (occurrence: None)
  Receive Date: 20101215
  Receipt Date: 20101130
  Transmission Date: 20110411
  Serious: Yes (Hospitalization)
  Sender: FDA-Public Use
  Company Number: UTC-001970

PATIENT
  Age: 63 Year
  Sex: Female
  Weight: 131.5 kg

DRUGS (5)
  1. TYVASO [Suspect]
     Indication: PULMONARY ARTERIAL HYPERTENSION
     Dosage: 288 MCG (72 MCG,4 IN 1 D),INHALATION
     Route: 055
     Dates: start: 20091031
  2. TRACLEER [Concomitant]
  3. COUMADIN [Concomitant]
  4. DIURETICS (DIURETICS) [Concomitant]
  5. PROPAFENONE HCL [Concomitant]

REACTIONS (4)
  - DYSPNOEA [None]
  - PALPITATIONS [None]
  - PULMONARY OEDEMA [None]
  - THROAT IRRITATION [None]
